FAERS Safety Report 4735788-3 (Version None)
Quarter: 2005Q3

REPORT INFORMATION
  Report Type: 
  Country: None (occurrence: None)
  Receive Date: 20050805
  Receipt Date: 20050624
  Transmission Date: 20060218
  Serious: Yes (Other)
  Sender: FDA-Public Use
  Company Number: CH-NOVOPROD-245064

PATIENT
  Age: 7 Year
  Sex: Male
  Weight: 22 kg

DRUGS (4)
  1. NORDITROPIN SIMPLEXX [Suspect]
     Indication: GROWTH HORMONE DEFICIENCY
     Dosage: .6 MG, QD
     Route: 058
     Dates: start: 20050120, end: 20050624
  2. SIMILASAN [Concomitant]
     Indication: HYPERSENSITIVITY
  3. RHINATHIOL                              /SCH/ [Concomitant]
  4. SIMILASAN [Concomitant]
     Indication: RHINITIS

REACTIONS (5)
  - CONGENITAL APLASTIC ANAEMIA [None]
  - GRANULOCYTOPENIA [None]
  - LYMPHOCYTOSIS [None]
  - PANCYTOPENIA [None]
  - THROMBOCYTOPENIA [None]
